FAERS Safety Report 8180595-5 (Version None)
Quarter: 2012Q1

REPORT INFORMATION
  Report Type: 
  Country: None (occurrence: None)
  Receive Date: 20120302
  Receipt Date: 20120223
  Transmission Date: 20120608
  Serious: Yes (Other)
  Sender: FDA-Public Use
  Company Number: SG-ROCHE-1044217

PATIENT
  Age: 44 Year
  Sex: Male

DRUGS (7)
  1. CLARITHROMYCIN [Concomitant]
  2. MOXIFLOXACIN [Concomitant]
  3. CEFTRIAXONE [Concomitant]
  4. ZANAMIVIR [Concomitant]
     Route: 042
  5. VANCOMYCIN [Concomitant]
  6. CEFTAZIDIME [Concomitant]
  7. OSELTAMIVIR [Suspect]
     Indication: H1N1 INFLUENZA
     Route: 048

REACTIONS (2)
  - PATHOGEN RESISTANCE [None]
  - DRUG INEFFECTIVE [None]
